FAERS Safety Report 17075801 (Version 5)
Quarter: 2020Q1

REPORT INFORMATION
  Report Type: Spontaneous
  Country: US (occurrence: US)
  Receive Date: 20191126
  Receipt Date: 20200313
  Transmission Date: 20200409
  Serious: No
  Sender: FDA-Public Use
  Company Number: US-PFIZER INC-2019509285

PATIENT
  Age: 88 Year
  Sex: Female
  Weight: 44.45 kg

DRUGS (2)
  1. ADVIL [Suspect]
     Active Substance: IBUPROFEN
     Dosage: UNK
  2. ADVIL [Suspect]
     Active Substance: IBUPROFEN
     Dosage: 200 MG, UNK

REACTIONS (3)
  - Product packaging difficult to open [Unknown]
  - Pain in extremity [Unknown]
  - Malaise [Unknown]
